FAERS Safety Report 5066638-6 (Version None)
Quarter: 2006Q3

REPORT INFORMATION
  Report Type: 
  Country: None (occurrence: None)
  Receive Date: 20060801
  Receipt Date: 20060724
  Transmission Date: 20061208
  Serious: Yes (Hospitalization)
  Sender: FDA-Public Use
  Company Number: US-AVENTIS-200616213US

PATIENT

DRUGS (3)
  1. LANTUS [Suspect]
     Dosage: DOSE: UNK
  2. HUMALOG [Suspect]
     Dosage: DOSE: UNK
  3. NOVOLOG [Suspect]
     Dosage: DOSE: UNK

REACTIONS (2)
  - INCORRECT DOSE ADMINISTERED [None]
  - MEDICATION ERROR [None]
